FAERS Safety Report 15560305 (Version 1)
Quarter: 2018Q4

REPORT INFORMATION
  Report Type: Spontaneous
  Country: US (occurrence: US)
  Receive Date: 20181029
  Receipt Date: 20181029
  Transmission Date: 20190205
  Serious: No
  Sender: FDA-Public Use
  Company Number: US-JUBILANT CADISTA PHARMACEUTICALS-2017JUB00403

PATIENT
  Sex: Female

DRUGS (5)
  1. IRON [Concomitant]
     Active Substance: IRON
     Dosage: AS NEEDED
  2. TEMAZEPAM. [Concomitant]
     Active Substance: TEMAZEPAM
  3. LISINOPRIL. [Concomitant]
     Active Substance: LISINOPRIL
  4. ESCITALOPRAM [Suspect]
     Active Substance: ESCITALOPRAM OXALATE
     Dosage: UNK
  5. FONDAPARINUX [Suspect]
     Active Substance: FONDAPARINUX
     Dosage: UNK, 1X/DAY
     Route: 058
     Dates: start: 20170923

REACTIONS (2)
  - Diarrhoea [Unknown]
  - Tinnitus [Unknown]
